FAERS Safety Report 17871565 (Version 1)
Quarter: 2020Q2

REPORT INFORMATION
  Report Type: Spontaneous
  Country: GB (occurrence: GB)
  Receive Date: 20200608
  Receipt Date: 20200608
  Transmission Date: 20200714
  Serious: Yes (Other)
  Sender: FDA-Public Use
  Company Number: GB-MYLANLABS-2020M1054584

PATIENT
  Sex: Male

DRUGS (1)
  1. EFAVIRENZ,EMTRICITABINE,TENOFOVIR MYLAN [Suspect]
     Active Substance: EFAVIRENZ\EMTRICITABINE\TENOFOVIR DISOPROXIL FUMARATE
     Indication: PRODUCT USED FOR UNKNOWN INDICATION
     Dosage: UNK, QD

REACTIONS (4)
  - Condition aggravated [Unknown]
  - COVID-19 [Unknown]
  - Dyspnoea [Unknown]
  - Fatigue [Unknown]
